FAERS Safety Report 11338105 (Version 1)
Quarter: 2015Q3

REPORT INFORMATION
  Report Type: Spontaneous
  Country: US (occurrence: US)
  Receive Date: 20150803
  Receipt Date: 20150803
  Transmission Date: 20151125
  Serious: No
  Sender: FDA-Public Use
  Company Number: US-ELI_LILLY_AND_COMPANY-USA020110313

PATIENT
  Sex: Male
  Weight: 102.27 kg

DRUGS (6)
  1. ZYPREXA [Suspect]
     Active Substance: OLANZAPINE
     Indication: SCHIZOAFFECTIVE DISORDER
     Dosage: 10 MG, DAILY (1/D)
     Route: 048
     Dates: start: 2000
  2. LEXAPRO [Concomitant]
     Active Substance: ESCITALOPRAM OXALATE
  3. FLUOXETINE                              /N/A/ [Concomitant]
     Indication: DEPRESSION
     Dosage: 20 MG, UNKNOWN
     Dates: start: 2002
  4. PAXIL [Concomitant]
     Active Substance: PAROXETINE HYDROCHLORIDE
     Dosage: 40 MG, EACH MORNING
     Route: 048
     Dates: start: 1993
  5. GLUCOPHAGE [Concomitant]
     Active Substance: METFORMIN HYDROCHLORIDE
     Indication: BLOOD GLUCOSE INCREASED
     Dosage: UNK, UNKNOWN
     Dates: start: 200304
  6. LITHIUM. [Concomitant]
     Active Substance: LITHIUM
     Dosage: 600 MG, 2/D
     Route: 048
     Dates: start: 1994

REACTIONS (9)
  - Sedation [Unknown]
  - Headache [Unknown]
  - Headache [Recovered/Resolved]
  - Weight increased [Not Recovered/Not Resolved]
  - Insomnia [Recovered/Resolved]
  - Blood glucose increased [Unknown]
  - Type 2 diabetes mellitus [Unknown]
  - Thinking abnormal [Unknown]
  - Blood triglycerides increased [Recovering/Resolving]
